FAERS Safety Report 21364880 (Version 1)
Quarter: 2022Q3

REPORT INFORMATION
  Report Type: Other
  Country: US (occurrence: US)
  Receive Date: 20220922
  Receipt Date: 20220922
  Transmission Date: 20221027
  Serious: Yes (Other)
  Sender: FDA-Public Use
  Company Number: US-GBT-016304

PATIENT
  Age: 33 Year
  Sex: Female

DRUGS (1)
  1. OXBRYTA [Suspect]
     Active Substance: VOXELOTOR
     Indication: Product used for unknown indication

REACTIONS (6)
  - Osteonecrosis [Unknown]
  - Renal impairment [Unknown]
  - Hypersplenism [Unknown]
  - Cerebrovascular accident [Unknown]
  - Sickle cell anaemia with crisis [Unknown]
  - Cognitive disorder [Unknown]
